FAERS Safety Report 7815620-1 (Version None)
Quarter: 2011Q4

REPORT INFORMATION
  Report Type: 
  Country: None (occurrence: None)
  Receive Date: 20111014
  Receipt Date: 20111010
  Transmission Date: 20120403
  Serious: Yes (Death)
  Sender: FDA-Public Use
  Company Number: US-ABBOTT-11P-163-0731420-00

PATIENT
  Sex: Female

DRUGS (7)
  1. UNKNOWN BLOOD PRESSURE MEDICATION [Concomitant]
     Indication: HYPERTENSION
     Route: 048
     Dates: end: 20110601
  2. ANTI INFLAMMATORY [Concomitant]
     Indication: PAIN
     Dosage: PRN
     Route: 048
     Dates: end: 20110601
  3. DIURETIC [Concomitant]
     Indication: OEDEMA PERIPHERAL
     Route: 048
     Dates: end: 20110601
  4. SYNTHROID [Suspect]
     Indication: HYPOTHYROIDISM
     Route: 048
     Dates: start: 20091231, end: 20110601
  5. UNKNOWN NARCOTICS [Concomitant]
     Indication: PAIN
     Dosage: PRN
     Route: 048
     Dates: end: 20110601
  6. UNKNOWN BREATHING TREATMENTS [Concomitant]
     Indication: CHRONIC OBSTRUCTIVE PULMONARY DISEASE
     Dates: end: 20110601
  7. UNKNOWN INHALERS [Concomitant]
     Indication: CHRONIC OBSTRUCTIVE PULMONARY DISEASE
     Dates: end: 20110601

REACTIONS (2)
  - DYSPNOEA [None]
  - OEDEMA PERIPHERAL [None]
